FAERS Safety Report 7823399-2 (Version None)
Quarter: 2011Q4

REPORT INFORMATION
  Report Type: 
  Country: None (occurrence: None)
  Receive Date: 20111019
  Receipt Date: 20111012
  Transmission Date: 20120403
  Serious: Yes (Hospitalization)
  Sender: FDA-Public Use
  Company Number: DE-UCBSA-043297

PATIENT
  Sex: Male

DRUGS (4)
  1. KEPPRA [Suspect]
     Dosage: AS USED: 1000 MG - 0 -1000 MG
  2. KEPPRA [Suspect]
  3. LAMOTRIGINE [Concomitant]
     Dosage: 150 MG
  4. PHENYTOIN [Concomitant]
     Dosage: 100 MG

REACTIONS (1)
  - HYPONATRAEMIA [None]
